FAERS Safety Report 14768017 (Version 1)
Quarter: 2018Q2

REPORT INFORMATION
  Report Type: Spontaneous
  Country: IL (occurrence: IL)
  Receive Date: 20180417
  Receipt Date: 20180417
  Transmission Date: 20180711
  Serious: Yes (Other)
  Sender: FDA-Public Use
  Company Number: IL-ROCHE-2106287

PATIENT
  Age: 68 Year
  Sex: Female

DRUGS (1)
  1. MABTHERA [Suspect]
     Active Substance: RITUXIMAB
     Indication: AUTOIMMUNE HAEMOLYTIC ANAEMIA
     Route: 065

REACTIONS (7)
  - Fungal infection [Unknown]
  - Intentional product use issue [Unknown]
  - Osteonecrosis of jaw [Recovering/Resolving]
  - Off label use [Unknown]
  - Erythema multiforme [Unknown]
  - Bacterial infection [Unknown]
  - Stevens-Johnson syndrome [Unknown]
